FAERS Safety Report 5651148-5 (Version None)
Quarter: 2008Q1

REPORT INFORMATION
  Report Type: 
  Country: None (occurrence: None)
  Receive Date: 20080305
  Receipt Date: 20080228
  Transmission Date: 20080703
  Serious: Yes (Hospitalization)
  Sender: FDA-Public Use
  Company Number: US-MERCK-0802USA06243

PATIENT
  Age: 15 Year
  Sex: Male

DRUGS (7)
  1. ZOLINZA [Suspect]
     Indication: T-CELL LYMPHOMA
     Route: 065
     Dates: start: 20070204
  2. ALEMTUZUMAB [Concomitant]
     Route: 065
  3. BORTEZOMIB [Concomitant]
     Route: 065
  4. MEPERIDINE HYDROCHLORIDE [Concomitant]
     Route: 065
  5. BACTRIM [Concomitant]
     Route: 065
  6. VORICONAZOLE [Concomitant]
     Route: 065
  7. ACETAMINOPHEN [Concomitant]
     Route: 065

REACTIONS (2)
  - NEUROPATHY PERIPHERAL [None]
  - T-CELL LYMPHOMA RECURRENT [None]
